FAERS Safety Report 12557207 (Version 1)
Quarter: 2016Q3

REPORT INFORMATION
  Report Type: Spontaneous
  Country: IT (occurrence: IT)
  Receive Date: 20160714
  Receipt Date: 20160714
  Transmission Date: 20161109
  Serious: Yes (Other)
  Sender: FDA-Public Use
  Company Number: IT-TEVA-670000ACC

PATIENT
  Age: 47 Year
  Sex: Female

DRUGS (1)
  1. ATENOLOL. [Suspect]
     Active Substance: ATENOLOL
     Indication: EXTRASYSTOLES
     Dosage: 25 MILLIGRAM DAILY;
     Route: 048
     Dates: start: 20160415, end: 20160415

REACTIONS (5)
  - Hypotension [Unknown]
  - Nausea [Recovered/Resolved]
  - Bradycardia [Unknown]
  - Vertigo [Recovered/Resolved]
  - Tremor [Recovered/Resolved]

NARRATIVE: CASE EVENT DATE: 20160415
